FAERS Safety Report 4971800-4 (Version None)
Quarter: 2006Q2

REPORT INFORMATION
  Report Type: 
  Country: None (occurrence: None)
  Receive Date: 20060413
  Receipt Date: 20060403
  Transmission Date: 20061013
  Serious: Yes (Other)
  Sender: FDA-Public Use
  Company Number: SE-JNJFOC-20050800468

PATIENT
  Age: 60 Year
  Sex: Female

DRUGS (9)
  1. REMICADE [Suspect]
     Indication: RHEUMATOID ARTHRITIS
     Route: 042
  2. PREDNISONE [Concomitant]
  3. SEROXAT [Concomitant]
  4. SALAZOPYRIN [Concomitant]
  5. ALVEDON [Concomitant]
  6. DOLOXENE [Concomitant]
  7. DIDRONATE [Concomitant]
  8. PREDNISOLONE [Concomitant]
  9. MOBIC [Concomitant]

REACTIONS (2)
  - PULMONARY TUBERCULOSIS [None]
  - RHEUMATOID ARTHRITIS [None]
